FAERS Safety Report 23714514 (Version 1)
Quarter: 2024Q2

REPORT INFORMATION
  Report Type: Spontaneous
  Country: US (occurrence: US)
  Receive Date: 20240406
  Receipt Date: 20240406
  Transmission Date: 20240717
  Serious: Yes (Hospitalization)
  Sender: FDA-Public Use
  Company Number: US-ABBVIE-5707418

PATIENT
  Age: 55 Year
  Sex: Female

DRUGS (1)
  1. RINVOQ [Suspect]
     Active Substance: UPADACITINIB
     Indication: Rheumatoid arthritis
     Dosage: FORM STRENGTH: 15 MILLIGRAM?START DATE TEXT: A LITTLE MORE THAN A YEAR
     Route: 048
     Dates: end: 202403

REACTIONS (6)
  - Meningitis viral [Recovered/Resolved]
  - Disorientation [Recovered/Resolved]
  - Illness [Recovered/Resolved]
  - Visual impairment [Recovered/Resolved]
  - Skin discolouration [Recovered/Resolved]
  - Pain in jaw [Recovered/Resolved]

NARRATIVE: CASE EVENT DATE: 20240301
